FAERS Safety Report 10367377 (Version 1)
Quarter: 2014Q3

REPORT INFORMATION
  Report Type: Spontaneous
  Country: FR (occurrence: FR)
  Receive Date: 20140807
  Receipt Date: 20140807
  Transmission Date: 20150326
  Serious: Yes (Life-Threatening, Hospitalization)
  Sender: FDA-Public Use
  Company Number: FR-ASTRAZENECA-2014SE56772

PATIENT
  Age: 32593 Day
  Sex: Female

DRUGS (32)
  1. RISPERDAL [Concomitant]
     Active Substance: RISPERIDONE
     Route: 048
     Dates: start: 20140604, end: 20140605
  2. KAYEXALATE [Concomitant]
     Active Substance: SODIUM POLYSTYRENE SULFONATE
     Dosage: 2 SPOONS (UNSPECIFIED FREQUENCY)
     Route: 048
     Dates: start: 20140626, end: 20140628
  3. FRAXODI [Suspect]
     Active Substance: NADROPARIN CALCIUM
     Dosage: 11400 IU/0.6 ML, 1 DF QD
     Route: 058
     Dates: start: 20140605, end: 20140608
  4. COLCHICINE OPOCALCIUM [Concomitant]
     Active Substance: COLCHICINE
     Route: 048
     Dates: end: 20140602
  5. SPECIAFOLDINE [Concomitant]
     Active Substance: FOLIC ACID
     Route: 048
  6. ALLOPURINOL. [Concomitant]
     Active Substance: ALLOPURINOL
     Route: 048
     Dates: start: 20140603
  7. BURINEX [Concomitant]
     Active Substance: BUMETANIDE
     Route: 048
     Dates: start: 20140605
  8. KARDEGIC [Concomitant]
     Active Substance: ASPIRIN LYSINE
     Route: 048
  9. TEMERIT [Concomitant]
     Active Substance: NEBIVOLOL
     Route: 048
  10. TIAPRIDAL [Concomitant]
     Active Substance: TIAPRIDE HYDROCHLORIDE
     Dosage: 5 MG/DROP, UNTIL 35 DROPS QD
     Route: 048
     Dates: start: 20140601, end: 20140605
  11. LIPANTHYL [Concomitant]
     Active Substance: FENOFIBRATE
     Route: 048
     Dates: start: 20140603
  12. RISPERDAL [Concomitant]
     Active Substance: RISPERIDONE
     Route: 048
     Dates: start: 20140605, end: 20140606
  13. EUPANTOL [Concomitant]
     Active Substance: PANTOPRAZOLE SODIUM
     Route: 048
     Dates: start: 20140603
  14. KAYEXALATE [Concomitant]
     Active Substance: SODIUM POLYSTYRENE SULFONATE
     Dosage: 454 G, 1 SPOON QD
     Route: 048
     Dates: start: 20140605, end: 20140608
  15. APROVEL [Suspect]
     Active Substance: IRBESARTAN
     Route: 048
     Dates: start: 20140624
  16. TRIVASTAL [Concomitant]
     Active Substance: PIRIBEDIL
     Dosage: 50 MG QD SR
     Route: 048
     Dates: end: 20140603
  17. ATACAND [Suspect]
     Active Substance: CANDESARTAN CILEXETIL
     Route: 048
     Dates: end: 20140608
  18. DIOSMINE [Concomitant]
     Active Substance: HESPERIDIN
     Route: 048
     Dates: end: 20140602
  19. TRANSIPEG [Concomitant]
     Active Substance: POLYETHYLENE GLYCOL 3350
     Dosage: 2 SACHETS QD
     Route: 048
     Dates: start: 201406
  20. DAFALGAN [Concomitant]
     Active Substance: ACETAMINOPHEN
     Dosage: 2 G QD IF NEEDED
     Route: 048
     Dates: end: 20140608
  21. LANZOR [Concomitant]
     Active Substance: LANSOPRAZOLE
     Route: 048
     Dates: end: 20140603
  22. ATARAX [Concomitant]
     Active Substance: HYDROXYZINE\HYDROXYZINE HYDROCHLORIDE
     Route: 048
     Dates: start: 20140604, end: 20140608
  23. SERESTA [Concomitant]
     Active Substance: OXAZEPAM
     Route: 048
     Dates: start: 201406
  24. FORADIL [Concomitant]
     Active Substance: FORMOTEROL FUMARATE
     Route: 055
  25. BURINEX [Concomitant]
     Active Substance: BUMETANIDE
     Route: 048
     Dates: end: 20140605
  26. LIPANOR [Concomitant]
     Active Substance: CIPROFIBRATE
     Route: 048
     Dates: end: 20140603
  27. LASILIX [Concomitant]
     Active Substance: FUROSEMIDE
     Route: 048
     Dates: start: 20140601
  28. TIAPRIDAL [Concomitant]
     Active Substance: TIAPRIDE HYDROCHLORIDE
     Dosage: 100 MG/2 ML, 1 DF QD
     Route: 030
     Dates: start: 20140602, end: 20140604
  29. GLUCOSE [Concomitant]
     Active Substance: DEXTROSE
     Route: 042
     Dates: start: 20140602, end: 20140608
  30. RISPERDAL [Concomitant]
     Active Substance: RISPERIDONE
     Route: 048
     Dates: start: 20140603, end: 20140604
  31. ZOLPIDEM [Concomitant]
     Active Substance: ZOLPIDEM\ZOLPIDEM TARTRATE
     Route: 048
     Dates: start: 20140603, end: 20140608
  32. LOXAPAC [Concomitant]
     Active Substance: LOXAPINE SUCCINATE
     Dosage: 25 MG/ML, 15 DROPS QD
     Route: 048
     Dates: start: 20140606, end: 20140608

REACTIONS (6)
  - Delirium [Unknown]
  - Phlebitis [Unknown]
  - Dementia Alzheimer^s type [Unknown]
  - Pleural effusion [Unknown]
  - Agitation [Unknown]
  - Hyperkalaemia [Recovered/Resolved]

NARRATIVE: CASE EVENT DATE: 20140602
